FAERS Safety Report 4742450-X (Version None)
Quarter: 2005Q3

REPORT INFORMATION
  Report Type: 
  Country: None (occurrence: None)
  Receive Date: 20050804
  Receipt Date: 20050418
  Transmission Date: 20060218
  Serious: No
  Sender: FDA-Public Use
  Company Number: FACT0500358

PATIENT
  Age: 53 Year
  Sex: Female
  Weight: 107.9 kg

DRUGS (17)
  1. FACTIVE [Suspect]
     Indication: RESPIRATORY TRACT INFECTION BACTERIAL
     Dosage: 320 MG, QD, ORAL
     Route: 048
     Dates: start: 20050406, end: 20050413
  2. KLONOPIN [Concomitant]
  3. DEPAKOTE [Concomitant]
  4. NEURONTIN [Concomitant]
  5. NEXIUM [Concomitant]
  6. LASIX [Concomitant]
  7. OXYCONTIN [Concomitant]
  8. SYNTHROID [Concomitant]
  9. HYDROCORTISONE [Concomitant]
  10. VASOTEC [Concomitant]
  11. DURAGESIC-100 [Concomitant]
  12. ADVAIR (FLUTICASONE PROPIONATE, SALMETEROL XINAFOATE) [Concomitant]
  13. PREMARIN [Concomitant]
  14. ALBUTEROL [Concomitant]
  15. PROVIGIL [Concomitant]
  16. ZANAFLEX [Concomitant]
  17. TOPROL-XL [Concomitant]

REACTIONS (1)
  - RASH PAPULAR [None]
